FAERS Safety Report 24127441 (Version 1)
Quarter: 2024Q3

REPORT INFORMATION
  Report Type: Report from Study
  Country: US (occurrence: US)
  Receive Date: 20240723
  Receipt Date: 20240723
  Transmission Date: 20241017
  Serious: No
  Sender: VANDA PHARMACEUTICALS
  Company Number: US-VANDA PHARMACEUTICALS, INC-2023TASUS006934

PATIENT
  Sex: Female
  Weight: 115.28 kg

DRUGS (15)
  1. HETLIOZ [Suspect]
     Active Substance: TASIMELTEON
     Indication: Non-24-hour sleep-wake disorder
     Dosage: 20 MILLIGRAM, QHS, EVERY 24 HOURS ONE HOUR BEFORE BEDTIME
     Route: 048
     Dates: start: 2017
  2. PROBIOTICS [UMBRELLA TERM] [Concomitant]
     Indication: Product used for unknown indication
     Dosage: 10B CELL CAPSULE
  3. ROSUVASTATIN CALCIUM [Concomitant]
     Active Substance: ROSUVASTATIN CALCIUM
     Indication: Product used for unknown indication
     Dosage: 10 MILLIGRAM TABLET
  4. SYNTHROID [Concomitant]
     Active Substance: LEVOTHYROXINE SODIUM
     Indication: Product used for unknown indication
     Dosage: 150 MICROGRAM
  5. HAWTHORN [CRATAEGUS LAEVIGATA] [Concomitant]
     Indication: Product used for unknown indication
     Dosage: 150 MICROGRAM CAPSULE
  6. DIGESTIVE ENZYMES [AMYLASE;CELLULASE;LIPASE;MALTASE;PROTEASE NOS;SUCRA [Concomitant]
     Indication: Product used for unknown indication
     Dosage: 220 MILLIGRAM CAPSULE
  7. CALCIUM CARBONATE\MAGNESIUM CARBONATE [Concomitant]
     Active Substance: CALCIUM CARBONATE\MAGNESIUM CARBONATE
     Indication: Product used for unknown indication
     Dosage: 300-150 MILLIGRAM
  8. VITAMINS NOS [Concomitant]
     Active Substance: VITAMINS
     Indication: Product used for unknown indication
     Dosage: UNK
  9. ANASTROZOLE [Concomitant]
     Active Substance: ANASTROZOLE
     Indication: Product used for unknown indication
     Dosage: 1 MILLIGRAM TABLET
  10. CLARITIN-D NOS [Concomitant]
     Active Substance: LORATADINE\PSEUDOEPHEDRINE SULFATE
     Indication: Product used for unknown indication
     Dosage: 12H
  11. OMEGA 3 6 9 COMPLEX [Concomitant]
     Indication: Product used for unknown indication
     Dosage: 1200 MILLIGRAM CAPSULE
  12. COLACE [Concomitant]
     Active Substance: DOCUSATE SODIUM
     Indication: Product used for unknown indication
     Dosage: 100 MILLIGRAM CAPSULE
  13. COENZYME Q10 [Concomitant]
     Active Substance: DIETARY SUPPLEMENT\UBIDECARENONE
     Indication: Product used for unknown indication
     Dosage: 50 MILLIGRAM TABLET CHEW
  14. VITAMIN C [Concomitant]
     Active Substance: ASCORBIC ACID
     Indication: Product used for unknown indication
     Dosage: 1000 MILLIGRAM TABLET
  15. VITAMIN D2 [Concomitant]
     Active Substance: ERGOCALCIFEROL
     Indication: Product used for unknown indication
     Dosage: 1250 MICROGRAM CAPSULE

REACTIONS (1)
  - Product dose omission issue [Unknown]
